FAERS Safety Report 21057386 (Version 1)
Quarter: 2022Q3

REPORT INFORMATION
  Report Type: Other
  Country: DE (occurrence: DE)
  Receive Date: 20220708
  Receipt Date: 20220708
  Transmission Date: 20221027
  Serious: Yes (Death, Other)
  Sender: FDA-Public Use
  Company Number: DE-EMBRYOTOX-202104559-B

PATIENT
  Sex: Male
  Weight: 1.28 kg

DRUGS (8)
  1. QUETIAPINE FUMARATE [Suspect]
     Active Substance: QUETIAPINE FUMARATE
     Indication: Depression
     Dosage: 25 MG, TID (75 MG/D (25-25-25))
     Route: 064
     Dates: start: 20210323, end: 20210702
  2. VENLAFAXINE [Suspect]
     Active Substance: VENLAFAXINE HYDROCHLORIDE
     Indication: Depression
     Dosage: 225 [MG/D (BIS 150 MG/D) ]/ REDUCTION TO 150 MG/D AT GW 23 1/7 (0. - 27.3. GESTATIONAL WEEK) (1 (TRI
     Route: 064
     Dates: start: 20210120, end: 20210731
  3. TAVOR (LORAZEPAM) [Suspect]
     Active Substance: LORAZEPAM
     Indication: Depression
     Dosage: 13-13 GESTATIONAL WEEK (2 TRIMESTER)
     Route: 064
     Dates: start: 20210421, end: 20210421
  4. FLECAINIDE [Suspect]
     Active Substance: FLECAINIDE
     Indication: Tachycardia foetal
     Dosage: 400 MG, BID (800 MG/D (BIS 400) (23.1-27.2. GESTATIONAL WEEK))
     Route: 064
     Dates: start: 20210701, end: 20210730
  5. AMIODARONE [Suspect]
     Active Substance: AMIODARONE
     Indication: Tachycardia foetal
     Dosage: 2 DASAGE FORMAS, TWO APPLICATIONS (26.5.-27.2. GESTATIONAL WEEK) (2 TRIMESTER))
     Route: 064
     Dates: start: 20210726, end: 20210730
  6. LITHIUM CARBONATE [Suspect]
     Active Substance: LITHIUM CARBONATE
     Indication: Depression
     Dosage: 450 MG, BID (900 [MG/D (450-0-450) (13.1. - 27.3. GESTATIONAL WEEK) (2 (TRIMESTER))
     Route: 064
     Dates: start: 20210422, end: 20210731
  7. METOPROLOL SUCCINATE [Suspect]
     Active Substance: METOPROLOL SUCCINATE
     Indication: Tachycardia foetal
     Dosage: 95 MG, QD (95 MG/D (2X 47.5) (23.1. - 27.2. GESTATIONAL WEEK))
     Route: 064
     Dates: start: 20210701, end: 20210730
  8. CALCIUM PHOSPHATE, DIBASIC, ANHYDROUS\FERROUS SUCCINATE\MAGNESIUM HYDR [Suspect]
     Active Substance: CALCIUM PHOSPHATE, DIBASIC, ANHYDROUS\FERROUS SUCCINATE\MAGNESIUM HYDROXIDE
     Indication: Prophylaxis of neural tube defect
     Dosage: UNK
     Route: 064

REACTIONS (5)
  - Tachycardia foetal [Fatal]
  - Ascites [Fatal]
  - Hydrops foetalis [Fatal]
  - Pericardial effusion [Fatal]
  - Foetal exposure during pregnancy [Unknown]
